FAERS Safety Report 8326187 (Version 5)
Quarter: 2013Q1

REPORT INFORMATION
  Report Type: Spontaneous
  Country: US (occurrence: US)
  Receive Date: 20120106
  Receipt Date: 20130228
  Transmission Date: 20140127
  Serious: Yes (Hospitalization, Other)
  Sender: FDA-Public Use
  Company Number: US-ROCHE-1027283

PATIENT
  Age: 65 Year
  Sex: Female
  Weight: 104.42 kg

DRUGS (4)
  1. XOLAIR [Suspect]
     Indication: ASTHMA
     Route: 058
     Dates: start: 20090217, end: 20111026
  2. PROVENTIL [Concomitant]
     Indication: ASTHMA
     Dosage: 2 PUFFS
     Route: 065
     Dates: start: 19981111
  3. ADVAIR [Concomitant]
     Indication: ASTHMA
     Dosage: 1 PUFF EVERY 12 HOURS; STRENGTH: 250/50
     Route: 065
     Dates: start: 20020917
  4. XOPENEX [Concomitant]
     Indication: ASTHMA
     Dosage: ONE PUFF EVERY 6 HOURS TAKEN AS NEEDED
     Route: 065

REACTIONS (5)
  - Lung neoplasm malignant [Unknown]
  - Cholelithiasis [Unknown]
  - Carcinoid tumour pulmonary [Unknown]
  - Pulmonary mass [Unknown]
  - Blood iron decreased [Unknown]
